FAERS Safety Report 5847469-3 (Version None)
Quarter: 2008Q3

REPORT INFORMATION
  Report Type: 
  Country: None (occurrence: None)
  Receive Date: 20080813
  Receipt Date: 20080801
  Transmission Date: 20090109
  Serious: No
  Sender: FDA-Public Use
  Company Number: DSJ-2008-08974

PATIENT
  Age: 66 Year
  Sex: Male
  Weight: 54.2 kg

DRUGS (5)
  1. OLMESARTAN MEDOXOMIL [Suspect]
     Indication: ESSENTIAL HYPERTENSION
     Dosage: SEE IMAGE
     Route: 048
     Dates: start: 20070307, end: 20071002
  2. OLMESARTAN MEDOXOMIL [Suspect]
     Indication: ESSENTIAL HYPERTENSION
     Dosage: SEE IMAGE
     Route: 048
     Dates: start: 20071003, end: 20080108
  3. OLMESARTAN MEDOXOMIL [Suspect]
     Indication: ESSENTIAL HYPERTENSION
     Dosage: SEE IMAGE
     Route: 048
     Dates: start: 20080109
  4. NORVASC [Concomitant]
  5. STARSIS (NATEGLINIDE) (NATEGLINIDE) [Concomitant]

REACTIONS (2)
  - CONDITION AGGRAVATED [None]
  - RENAL IMPAIRMENT [None]
